FAERS Safety Report 8949484 (Version 1)
Quarter: 2012Q4

REPORT INFORMATION
  Report Type: 
  Country: CA (occurrence: CA)
  Receive Date: 20121206
  Receipt Date: 20121206
  Transmission Date: 20130627
  Serious: Yes (Other)
  Sender: FDA-Public Use
  Company Number: CA-PFIZER INC-2012305069

PATIENT
  Age: 58 Year
  Sex: Female

DRUGS (3)
  1. LYRICA [Suspect]
     Indication: NEUROPATHY
     Dosage: 25 mg for 1 week
     Dates: start: 20121104, end: 20121111
  2. LYRICA [Suspect]
     Dosage: 50 mg, UNK
     Dates: start: 20121112, end: 20121201
  3. LYRICA [Suspect]
     Dosage: 75 mg, UNK
     Dates: start: 20121202

REACTIONS (9)
  - Cognitive disorder [Not Recovered/Not Resolved]
  - Drug ineffective [Not Recovered/Not Resolved]
  - Anxiety [Not Recovered/Not Resolved]
  - Tremor [Not Recovered/Not Resolved]
  - Nervousness [Not Recovered/Not Resolved]
  - Crying [Not Recovered/Not Resolved]
  - Pain in extremity [Not Recovered/Not Resolved]
  - Depressed mood [Not Recovered/Not Resolved]
  - Thyroid disorder [Not Recovered/Not Resolved]
